FAERS Safety Report 12818709 (Version 1)
Quarter: 2016Q4

REPORT INFORMATION
  Report Type: Spontaneous
  Country: US (occurrence: US)
  Receive Date: 20161006
  Receipt Date: 20161006
  Transmission Date: 20170207
  Serious: No
  Sender: FDA-Public Use
  Company Number: US-VERTEX PHARMACEUTICALS-2016-005634

PATIENT
  Sex: Female

DRUGS (29)
  1. SINGULAIR [Concomitant]
     Active Substance: MONTELUKAST SODIUM
  2. IPRATROPIUM [Concomitant]
     Active Substance: IPRATROPIUM
  3. BACTRIM DS [Concomitant]
     Active Substance: SULFAMETHOXAZOLE\TRIMETHOPRIM
  4. VITAMIN D2 [Concomitant]
     Active Substance: ERGOCALCIFEROL
  5. KALYDECO [Suspect]
     Active Substance: IVACAFTOR
     Indication: CYSTIC FIBROSIS
     Dosage: 1 DF, BID
     Route: 048
     Dates: start: 20160818
  6. ZYRTEC [Concomitant]
     Active Substance: CETIRIZINE HYDROCHLORIDE
  7. TRAZODONE [Concomitant]
     Active Substance: TRAZODONE HYDROCHLORIDE
  8. ACTIGALL [Concomitant]
     Active Substance: URSODIOL
  9. HUMALOG [Concomitant]
     Active Substance: INSULIN LISPRO
  10. NEXIUM [Concomitant]
     Active Substance: ESOMEPRAZOLE MAGNESIUM
  11. MULTIVITAMIN [Concomitant]
     Active Substance: VITAMINS
  12. VITAMIN K [Concomitant]
     Active Substance: PHYTONADIONE
  13. VITAMIN B12 [Concomitant]
     Active Substance: CYANOCOBALAMIN
  14. FLONASE [Concomitant]
     Active Substance: FLUTICASONE PROPIONATE
  15. METHYLPHENIDATE. [Concomitant]
     Active Substance: METHYLPHENIDATE
  16. FIORINAL [Concomitant]
     Active Substance: ASPIRIN\BUTALBITAL\CAFFEINE
  17. ALYACEN [Concomitant]
  18. DOXYCYCLINE. [Concomitant]
     Active Substance: DOXYCYCLINE
  19. CELEXA [Concomitant]
     Active Substance: CITALOPRAM HYDROBROMIDE
  20. COLISTIN SULFATE [Concomitant]
     Active Substance: COLISTIN SULFATE
  21. LYSTEDA [Concomitant]
     Active Substance: TRANEXAMIC ACID
  22. PREDNISONE. [Concomitant]
     Active Substance: PREDNISONE
  23. TOBRAMYCIN. [Concomitant]
     Active Substance: TOBRAMYCIN
  24. VENTOLIN [Concomitant]
     Active Substance: ALBUTEROL SULFATE
  25. CLONAZEPAM. [Concomitant]
     Active Substance: CLONAZEPAM
  26. ALBUTEROL SULFATE. [Concomitant]
     Active Substance: ALBUTEROL SULFATE
  27. FERROUS SULFATE. [Concomitant]
     Active Substance: FERROUS SULFATE
  28. MAGNESIUM [Concomitant]
     Active Substance: MAGNESIUM
  29. PULMOZYME [Concomitant]
     Active Substance: DORNASE ALFA

REACTIONS (1)
  - Infective pulmonary exacerbation of cystic fibrosis [Unknown]

NARRATIVE: CASE EVENT DATE: 2016
